FAERS Safety Report 9143557 (Version 4)
Quarter: 2013Q2

REPORT INFORMATION
  Report Type: Report from Study
  Country: NL (occurrence: NL)
  Receive Date: 20130306
  Receipt Date: 20130423
  Transmission Date: 20140414
  Serious: Yes (Hospitalization)
  Sender: FDA-Public Use
  Company Number: NL-ROCHE-1186321

PATIENT
  Age: 47 Year
  Sex: Male

DRUGS (4)
  1. VEMURAFENIB [Suspect]
     Indication: MALIGNANT MELANOMA
     Route: 048
     Dates: start: 20130103
  2. VEMURAFENIB [Suspect]
     Dosage: INTERRUPTED ON 24/JAN/2013
     Route: 048
     Dates: start: 20130107, end: 20130124
  3. CODEINE [Concomitant]
     Route: 065
     Dates: start: 201212
  4. XYLOMETAZOLINE [Concomitant]
     Route: 065
     Dates: start: 20130124, end: 20130127

REACTIONS (1)
  - Hepatic enzyme increased [Recovered/Resolved]
